FAERS Safety Report 13031970 (Version 2)
Quarter: 2017Q1

REPORT INFORMATION
  Report Type: Report from Study
  Country: US (occurrence: US)
  Receive Date: 20161215
  Receipt Date: 20170217
  Transmission Date: 20170428
  Serious: No
  Sender: FDA-Public Use
  Company Number: PHEH2016US032398

PATIENT
  Age: 39 Year
  Sex: Female

DRUGS (1)
  1. GILENYA [Suspect]
     Active Substance: FINGOLIMOD HYDROCHLORIDE
     Indication: MULTIPLE SCLEROSIS
     Dosage: 0.5 MG, QD
     Route: 048
     Dates: start: 20161205

REACTIONS (4)
  - Paraesthesia [Unknown]
  - Speech disorder [Unknown]
  - Eye swelling [Unknown]
  - Dizziness [Unknown]

NARRATIVE: CASE EVENT DATE: 20170214
